FAERS Safety Report 25387060 (Version 1)
Quarter: 2025Q2

REPORT INFORMATION
  Report Type: Spontaneous
  Country: TR (occurrence: TR)
  Receive Date: 20250602
  Receipt Date: 20250602
  Transmission Date: 20250716
  Serious: Yes (Other)
  Sender: SANDOZ
  Company Number: TR-002147023-NVSC2025TR087379

PATIENT

DRUGS (1)
  1. RITALIN [Suspect]
     Active Substance: METHYLPHENIDATE HYDROCHLORIDE
     Indication: Product used for unknown indication
     Route: 065

REACTIONS (4)
  - Hallucination, auditory [Unknown]
  - Human bite [Unknown]
  - Adverse drug reaction [Unknown]
  - Drug ineffective [Unknown]
